FAERS Safety Report 4532259-4 (Version None)
Quarter: 2004Q4

REPORT INFORMATION
  Report Type: 
  Country: None (occurrence: None)
  Receive Date: 20041206
  Receipt Date: 20041019
  Transmission Date: 20050328
  Serious: No
  Sender: FDA-Public Use
  Company Number: USA040978622

PATIENT
  Age: 43 Year
  Sex: Female

DRUGS (8)
  1. CYMBALTA [Suspect]
     Indication: MAJOR DEPRESSION
     Dosage: 60 MG/1 DAY
     Dates: start: 20040801
  2. HYDROCHLOROTHIAZIDE W/ IRBESARTAN [Concomitant]
  3. LIPITOR [Concomitant]
  4. ESTROGENS CONJUGATED [Concomitant]
  5. ZANTAC [Concomitant]
  6. NEXIUM [Concomitant]
  7. ACETAMINOPHEN W/ HYDROCODONE [Concomitant]
  8. VALIUM [Concomitant]

REACTIONS (3)
  - DRUG INEFFECTIVE [None]
  - DRY MOUTH [None]
  - LETHARGY [None]
